FAERS Safety Report 13541731 (Version 1)
Quarter: 2017Q2

REPORT INFORMATION
  Report Type: Spontaneous
  Country: CN (occurrence: CN)
  Receive Date: 20170512
  Receipt Date: 20170512
  Transmission Date: 20170830
  Serious: Yes (Hospitalization, Other)
  Sender: FDA-Public Use
  Company Number: CN-PFIZER INC-2017204596

PATIENT
  Age: 20 Year
  Sex: Male
  Weight: 63 kg

DRUGS (3)
  1. XUESHUANTONG [Suspect]
     Active Substance: HERBALS
     Indication: CARDIOVASCULAR DISORDER
     Dosage: 300 MG, 1X/DAY
     Route: 041
     Dates: start: 20170226, end: 20170307
  2. CELEBREX [Suspect]
     Active Substance: CELECOXIB
     Indication: ANALGESIC THERAPY
  3. CELEBREX [Suspect]
     Active Substance: CELECOXIB
     Indication: INFLAMMATORY PAIN
     Dosage: 0.2 G, 2X/DAY
     Route: 048
     Dates: start: 20170226, end: 20170307

REACTIONS (9)
  - Contusion [Unknown]
  - Laceration [Unknown]
  - Rash [Recovered/Resolved]
  - Concussion [Unknown]
  - Haemorrhage [Unknown]
  - Pain in extremity [Unknown]
  - Pruritus [Recovered/Resolved]
  - Road traffic accident [Unknown]
  - Pulmonary contusion [Unknown]

NARRATIVE: CASE EVENT DATE: 20170306
